FAERS Safety Report 10155505 (Version 1)
Quarter: 2014Q2

REPORT INFORMATION
  Report Type: Spontaneous
  Country: IT (occurrence: IT)
  Receive Date: 20140506
  Receipt Date: 20140506
  Transmission Date: 20141212
  Serious: Yes (Other)
  Sender: FDA-Public Use
  Company Number: IT-CELGENEUS-083-20785-14044716

PATIENT
  Sex: Female

DRUGS (2)
  1. THALIDOMIDE CELGENE [Suspect]
     Indication: PLASMA CELL MYELOMA
     Route: 048
     Dates: start: 201202, end: 201205
  2. THALIDOMIDE CELGENE [Suspect]
     Indication: OFF LABEL USE

REACTIONS (1)
  - Second primary malignancy [Unknown]
